FAERS Safety Report 9826692 (Version 1)
Quarter: 2013Q4

REPORT INFORMATION
  Report Type: Spontaneous
  Country: US (occurrence: None)
  Receive Date: 20131112
  Receipt Date: 20131112
  Transmission Date: 20140711
  Serious: No
  Sender: FDA-Public Use
  Company Number: US-012482

PATIENT
  Age: 67 Year
  Sex: Female
  Weight: 84.37 kg

DRUGS (4)
  1. PICO-SALAX (NOT SPECIFIED) [Suspect]
     Indication: BOWEL PREPARATION
     Dates: start: 20130725, end: 20130725
  2. EVISTA [Concomitant]
  3. CRESTOR [Concomitant]
  4. XANAX [Concomitant]

REACTIONS (2)
  - Nausea [None]
  - Abdominal pain [None]
